FAERS Safety Report 5777004-X (Version None)
Quarter: 2008Q2

REPORT INFORMATION
  Report Type: 
  Country: None (occurrence: None)
  Receive Date: 20080618
  Receipt Date: 20080507
  Transmission Date: 20081010
  Serious: No
  Sender: FDA-Public Use
  Company Number: US-ASTRAZENECA-2008UW09424

PATIENT
  Age: 10 Year
  Sex: Female
  Weight: 62.1 kg

DRUGS (3)
  1. SYMBICORT [Suspect]
     Indication: ASTHMA
     Dosage: 160/4.5 MCG 2 PUFFS BID
     Route: 055
     Dates: start: 20071101
  2. NASONEX [Concomitant]
  3. SINGULAIR [Concomitant]

REACTIONS (2)
  - THINKING ABNORMAL [None]
  - WEIGHT INCREASED [None]
